FAERS Safety Report 8080194-X (Version None)
Quarter: 2012Q1

REPORT INFORMATION
  Report Type: 
  Country: None (occurrence: None)
  Receive Date: 20120130
  Receipt Date: 20120119
  Transmission Date: 20120608
  Serious: Yes (Hospitalization)
  Sender: FDA-Public Use
  Company Number: US-NOVOPROD-340007

PATIENT
  Age: 21 Year
  Sex: Female
  Weight: 79.1 kg

DRUGS (4)
  1. LIRAGLUTIDE FLEXPEN [Suspect]
     Indication: OBESITY
     Dosage: 1.8 MG, QD
     Route: 058
     Dates: start: 20111027, end: 20111114
  2. OMEPRAZOLE [Concomitant]
     Indication: PRODUCT USED FOR UNKNOWN INDICATION
     Dosage: 20.0 MG, UNK
     Dates: start: 20111117
  3. LEVONORGESTREL + ETHINYL ESTRADIOL [Concomitant]
     Indication: PROPHYLAXIS
     Dosage: 1.0 TAB, QD
     Dates: start: 20110801
  4. NORETHINDRONE [Concomitant]
     Indication: CONTRACEPTION
     Dosage: 8.0 MG, QD
     Dates: start: 20111127

REACTIONS (1)
  - OVARIAN CYST [None]
